FAERS Safety Report 21124031 (Version 1)
Quarter: 2022Q3

REPORT INFORMATION
  Report Type: Spontaneous
  Country: GB (occurrence: GB)
  Receive Date: 20220725
  Receipt Date: 20220725
  Transmission Date: 20221026
  Serious: Yes (Other)
  Sender: FDA-Public Use
  Company Number: GB-AstraZeneca-2022A258761

PATIENT
  Age: 76 Year
  Sex: Male
  Weight: 108 kg

DRUGS (3)
  1. ACLIDINIUM BROMIDE\FORMOTEROL FUMARATE [Suspect]
     Active Substance: ACLIDINIUM BROMIDE\FORMOTEROL FUMARATE
     Indication: Product used for unknown indication
     Dosage: 1 DF TWO TIMES A DAY ON 16-MAY-2022
     Route: 065
     Dates: start: 20220516, end: 20220711
  2. DOXYCYCLINE [Concomitant]
     Active Substance: DOXYCYCLINE
     Indication: Product used for unknown indication
     Dosage: TWO TO BE TAKEN ON THE FIRST DAY THEN ONE TO BE TAKEN EACH DAY
     Route: 065
     Dates: start: 20220517, end: 20220629
  3. MODERNA COVID-19 VACCINE [Concomitant]
     Active Substance: ELASOMERAN
     Indication: Product used for unknown indication
     Dosage: 0.25 ML INTRAMUSCULAR
     Route: 030
     Dates: start: 20220605

REACTIONS (3)
  - Abscess [Unknown]
  - Mouth ulceration [Recovering/Resolving]
  - Diarrhoea [Unknown]
